FAERS Safety Report 6658142-6 (Version None)
Quarter: 2010Q1

REPORT INFORMATION
  Report Type: 
  Country: None (occurrence: None)
  Receive Date: 20100330
  Receipt Date: 20100325
  Transmission Date: 20100710
  Serious: Yes (Hospitalization)
  Sender: FDA-Public Use
  Company Number: A0844604B

PATIENT

DRUGS (4)
  1. ELTROMBOPAG [Suspect]
     Dosage: 75MG PER DAY
     Route: 048
     Dates: start: 20100128, end: 20100223
  2. TACROLIMUS [Concomitant]
     Dosage: .5MG TWICE PER DAY
  3. NORVASC [Concomitant]
     Indication: HYPERTENSION
  4. CELLCEPT [Concomitant]

REACTIONS (2)
  - DYSPNOEA [None]
  - PULMONARY EMBOLISM [None]
